FAERS Safety Report 11382897 (Version 1)
Quarter: 2015Q3

REPORT INFORMATION
  Report Type: Spontaneous
  Country: BR (occurrence: BR)
  Receive Date: 20150814
  Receipt Date: 20150814
  Transmission Date: 20151125
  Serious: Yes (Other)
  Sender: FDA-Public Use
  Company Number: BR-PFIZER INC-2015268701

PATIENT
  Sex: Female

DRUGS (1)
  1. FELDENE [Suspect]
     Active Substance: PIROXICAM

REACTIONS (1)
  - Coeliac disease [Unknown]
